FAERS Safety Report 9208253 (Version 2)
Quarter: 2013Q2

REPORT INFORMATION
  Report Type: Spontaneous
  Country: US (occurrence: US)
  Receive Date: 20130403
  Receipt Date: 20130521
  Transmission Date: 20140414
  Serious: Yes (Hospitalization, Other)
  Sender: FDA-Public Use
  Company Number: US-B.I. PHARMACEUTICALS,INC./RIDGEFIELD-2013-BI-08368BP

PATIENT
  Age: 55 Year
  Sex: Male
  Weight: 114 kg

DRUGS (3)
  1. MOBIC [Suspect]
     Indication: OSTEOARTHRITIS
     Dosage: 15 MG
     Route: 048
     Dates: start: 201212, end: 20130116
  2. LISINOPRIL [Concomitant]
     Indication: HYPERTENSION
     Dosage: 60 MG
     Route: 048
  3. WARFARIN [Concomitant]
     Indication: THROMBOSIS
     Dosage: 10 MG
     Route: 048
     Dates: start: 201004

REACTIONS (6)
  - Pulmonary thrombosis [Recovered/Resolved]
  - Pulmonary haemorrhage [Recovered/Resolved]
  - Pleural effusion [Recovered/Resolved]
  - International normalised ratio increased [Unknown]
  - Dyspnoea exertional [Not Recovered/Not Resolved]
  - Brugada syndrome [Not Recovered/Not Resolved]
